FAERS Safety Report 7649735-8 (Version None)
Quarter: 2011Q3

REPORT INFORMATION
  Report Type: 
  Country: None (occurrence: None)
  Receive Date: 20110727
  Receipt Date: 20110603
  Transmission Date: 20111222
  Serious: Yes (Other)
  Sender: FDA-Public Use
  Company Number: 20110433

PATIENT
  Age: 64 Year
  Sex: Female

DRUGS (4)
  1. DEXAMETHASONE SODIUM PHOSPHATE [Suspect]
     Indication: URTICARIA
     Dosage: 120 MG/ 0.5CC X 8 INTRAMUSCULAR
     Route: 030
     Dates: start: 20090101, end: 20110311
  2. KENALOG [Suspect]
     Indication: URTICARIA
     Dosage: 20 MG/ 0.5CC X 8 DOSES INTRAMUSCULAR
     Route: 030
     Dates: start: 20080101, end: 20110311
  3. PREMARIN [Concomitant]
  4. TENORMIN [Concomitant]

REACTIONS (17)
  - INJECTION SITE EXTRAVASATION [None]
  - INJECTION SITE INDURATION [None]
  - DRUG ADMINISTRATION ERROR [None]
  - INJECTION SITE PAIN [None]
  - INJECTION SITE HAEMATOMA [None]
  - INJECTION SITE ANAESTHESIA [None]
  - INJECTION SITE PARAESTHESIA [None]
  - INJECTION SITE DISCOLOURATION [None]
  - INJECTION SITE SCAR [None]
  - OPEN WOUND [None]
  - INJECTION SITE PRURITUS [None]
  - HYPERAESTHESIA [None]
  - PRODUCT QUALITY ISSUE [None]
  - SKIN DISORDER [None]
  - INJECTION SITE REACTION [None]
  - URTICARIA [None]
  - INJECTION SITE HAEMORRHAGE [None]
